FAERS Safety Report 25304828 (Version 2)
Quarter: 2025Q2

REPORT INFORMATION
  Report Type: Spontaneous
  Country: US (occurrence: US)
  Receive Date: 20250513
  Receipt Date: 20250530
  Transmission Date: 20250717
  Serious: Yes (Hospitalization)
  Sender: JOHNSON AND JOHNSON
  Company Number: US-JNJFOC-20250512046

PATIENT
  Age: 44 Year
  Sex: Male

DRUGS (2)
  1. SPRAVATO [Suspect]
     Active Substance: ESKETAMINE
     Indication: Depression
     Route: 045
  2. BOTOX [Suspect]
     Active Substance: ONABOTULINUMTOXINA

REACTIONS (4)
  - Paraesthesia [Recovering/Resolving]
  - Eyelid ptosis [Unknown]
  - Migraine [Recovered/Resolved]
  - Vision blurred [Unknown]

NARRATIVE: CASE EVENT DATE: 20250507
